FAERS Safety Report 11143180 (Version 1)
Quarter: 2015Q2

REPORT INFORMATION
  Report Type: Spontaneous
  Country: US (occurrence: US)
  Receive Date: 20150526
  Receipt Date: 20150526
  Transmission Date: 20150821
  Serious: No
  Sender: FDA-Public Use
  Company Number: US-NOVEN PHARMACEUTICALS, INC.-15US013487

PATIENT
  Sex: Female

DRUGS (2)
  1. MINIVELLE [Suspect]
     Active Substance: ESTRADIOL
     Dosage: 0.0375 MG TWO PATCHES, UNK
     Route: 062
     Dates: start: 201501
  2. MINIVELLE [Suspect]
     Active Substance: ESTRADIOL
     Indication: HOT FLUSH
     Dosage: .05 MG, UNK
     Route: 062
     Dates: start: 201501

REACTIONS (7)
  - Product quality issue [Not Recovered/Not Resolved]
  - Back pain [Not Recovered/Not Resolved]
  - Drug prescribing error [Recovered/Resolved]
  - Muscle spasms [Not Recovered/Not Resolved]
  - Abdominal discomfort [Not Recovered/Not Resolved]
  - Drug ineffective [Not Recovered/Not Resolved]
  - Wrong technique in drug usage process [Recovered/Resolved]

NARRATIVE: CASE EVENT DATE: 2015
